FAERS Safety Report 16764829 (Version 1)
Quarter: 2019Q3

REPORT INFORMATION
  Report Type: Spontaneous
  Country: CZ (occurrence: CZ)
  Receive Date: 20190903
  Receipt Date: 20190903
  Transmission Date: 20191005
  Serious: Yes (Hospitalization)
  Sender: FDA-Public Use
  Company Number: CZ-ROCHE-2394733

PATIENT
  Age: 66 Year
  Sex: Male
  Weight: 91 kg

DRUGS (8)
  1. COTELLIC [Suspect]
     Active Substance: COBIMETINIB
     Route: 048
     Dates: start: 20190302, end: 20190313
  2. ZELBORAF [Suspect]
     Active Substance: VEMURAFENIB
     Indication: MALIGNANT MELANOMA
     Route: 048
     Dates: start: 20190302, end: 20190313
  3. ZELBORAF [Suspect]
     Active Substance: VEMURAFENIB
     Dosage: MOST RECENT DOSE:17/JUL/2019
     Route: 048
     Dates: start: 20190525
  4. COTELLIC [Suspect]
     Active Substance: COBIMETINIB
     Route: 048
     Dates: start: 20190621, end: 20190706
  5. COTELLIC [Suspect]
     Active Substance: COBIMETINIB
     Route: 048
     Dates: end: 20190717
  6. COTELLIC [Suspect]
     Active Substance: COBIMETINIB
     Indication: MALIGNANT MELANOMA
     Dosage: 2ND REDUCTION BECAUSE OF ADVERSE EFFECTS
     Route: 048
     Dates: start: 20190522, end: 20190612
  7. ZELBORAF [Suspect]
     Active Substance: VEMURAFENIB
     Dosage: REDUCED BECAUSE OF ADVERSE EFFECTS
     Route: 048
     Dates: start: 20190417, end: 20190511
  8. COTELLIC [Suspect]
     Active Substance: COBIMETINIB
     Dosage: REDUCED DOSE BECAUSE OF ADVERSE EFFECTS
     Route: 048
     Dates: start: 20190417, end: 20190511

REACTIONS (4)
  - Biliary colic [Recovered/Resolved]
  - Maculopathy [Recovered/Resolved]
  - Rash [Recovered/Resolved]
  - Retinopathy [Recovering/Resolving]

NARRATIVE: CASE EVENT DATE: 20190313
